FAERS Safety Report 5545309-3 (Version None)
Quarter: 2007Q4

REPORT INFORMATION
  Report Type: 
  Country: None (occurrence: None)
  Receive Date: 20071205
  Receipt Date: 20071205
  Transmission Date: 20080405
  Serious: Yes (Death)
  Sender: FDA-Public Use
  Company Number: None

PATIENT
  Sex: Male
  Weight: 70.7611 kg

DRUGS (1)
  1. CHANTIX [Suspect]
     Indication: SMOKING CESSATION THERAPY
     Dosage: 0.5MG BID PO
     Route: 048
     Dates: start: 20070906, end: 20071119

REACTIONS (8)
  - ALCOHOL USE [None]
  - ANGER [None]
  - COMPLETED SUICIDE [None]
  - IRRITABILITY [None]
  - LEGAL PROBLEM [None]
  - MOOD ALTERED [None]
  - PARTNER STRESS [None]
  - THINKING ABNORMAL [None]
